FAERS Safety Report 24960326 (Version 1)
Quarter: 2025Q1

REPORT INFORMATION
  Report Type: Spontaneous
  Country: IN (occurrence: IN)
  Receive Date: 20250212
  Receipt Date: 20250212
  Transmission Date: 20250408
  Serious: Yes (Life-Threatening, Hospitalization)
  Sender: MYLAN
  Company Number: IN-MYLANLABS-2025M1011900

PATIENT
  Age: 3 Decade
  Sex: Male

DRUGS (8)
  1. MIDAZOLAM [Suspect]
     Active Substance: MIDAZOLAM
     Indication: Epilepsia partialis continua
     Route: 042
  2. PHENYTOIN [Suspect]
     Active Substance: PHENYTOIN
     Indication: Epilepsia partialis continua
     Route: 065
  3. LEVETIRACETAM [Concomitant]
     Active Substance: LEVETIRACETAM
     Indication: Epilepsia partialis continua
     Dosage: 1.5 GRAM, BID
     Route: 065
  4. LEVETIRACETAM [Concomitant]
     Active Substance: LEVETIRACETAM
     Route: 065
  5. OXCARBAZEPINE [Concomitant]
     Active Substance: OXCARBAZEPINE
     Indication: Epilepsia partialis continua
     Dosage: 750 MILLIGRAM, BID
     Route: 065
  6. Immunoglobulin [Concomitant]
     Indication: Epilepsia partialis continua
     Route: 042
  7. Immunoglobulin [Concomitant]
     Route: 042
  8. PERAMPANEL [Concomitant]
     Active Substance: PERAMPANEL
     Indication: Epilepsia partialis continua
     Dosage: 6 MILLIGRAM, QD
     Route: 065

REACTIONS (1)
  - Drug ineffective [Unknown]
